FAERS Safety Report 4646821-1 (Version None)
Quarter: 2005Q2

REPORT INFORMATION
  Report Type: 
  Country: None (occurrence: None)
  Receive Date: 20050331
  Receipt Date: 20050225
  Transmission Date: 20051028
  Serious: No
  Sender: FDA-Public Use
  Company Number: 05P-163-0292048-00

PATIENT
  Age: 67 Year
  Sex: Female
  Weight: 59.8748 kg

DRUGS (10)
  1. HUMIRA [Suspect]
     Indication: RHEUMATOID ARTHRITIS
     Dosage: 40 MG, 1 IN 2 WK, SUBCUTANEOUS;  40 MG, 1 IN 2 WK, SUBCUTANEOUS
     Route: 058
     Dates: start: 20040201
  2. HUMIRA [Suspect]
     Indication: RHEUMATOID ARTHRITIS
     Dosage: 40 MG, 1 IN 2 WK, SUBCUTANEOUS;  40 MG, 1 IN 2 WK, SUBCUTANEOUS
     Route: 058
     Dates: start: 20040601
  3. LEFLUNOMIDE [Concomitant]
  4. TRAMADOL HCL [Concomitant]
  5. ESOMEPRAZOLE [Concomitant]
  6. CALCIUM GLUCONATE [Concomitant]
  7. POTASSIUM CHLORIDE [Concomitant]
  8. HYDROCHLOROTHIAZIDE [Concomitant]
  9. LEVOTHYROXINE SODIUM [Concomitant]
  10. FOLIC ACID [Concomitant]

REACTIONS (3)
  - BONE EROSION [None]
  - MOBILITY DECREASED [None]
  - RHEUMATOID NODULE [None]
